FAERS Safety Report 4996482-7 (Version None)
Quarter: 2006Q2

REPORT INFORMATION
  Report Type: 
  Country: None (occurrence: None)
  Receive Date: 20060509
  Receipt Date: 20060428
  Transmission Date: 20061013
  Serious: Yes (Life-Threatening, Other)
  Sender: FDA-Public Use
  Company Number: US-JNJFOC-20051205988

PATIENT
  Sex: Female
  Weight: 77.57 kg

DRUGS (7)
  1. REMICADE [Suspect]
     Route: 042
  2. REMICADE [Suspect]
     Indication: RHEUMATOID ARTHRITIS
     Route: 042
  3. RITUXAN [Concomitant]
  4. PREDNISONE TAB [Concomitant]
  5. FOSOMAX [Concomitant]
     Indication: OSTEOPOROSIS
  6. ALEVE (CAPLET) [Concomitant]
     Indication: PAIN
  7. METHOTREXATE [Concomitant]

REACTIONS (2)
  - NON-HODGKIN'S LYMPHOMA [None]
  - RHEUMATOID ARTHRITIS [None]
